FAERS Safety Report 9869708 (Version 1)
Quarter: 2014Q1

REPORT INFORMATION
  Report Type: Spontaneous
  Country: CN (occurrence: None)
  Receive Date: 20140203
  Receipt Date: 20140203
  Transmission Date: 20141002
  Serious: Yes (Other)
  Sender: FDA-Public Use
  Company Number: 2014P1000608

PATIENT
  Age: 3 Month
  Sex: Male

DRUGS (1)
  1. PROPRANOLOL [Suspect]
     Indication: HAEMANGIOMA
     Route: 048

REACTIONS (6)
  - Cyanosis [None]
  - Peripheral coldness [None]
  - Blood pressure decreased [None]
  - Heart rate decreased [None]
  - Poor peripheral circulation [None]
  - PO2 decreased [None]
